FAERS Safety Report 12326232 (Version 1)
Quarter: 2016Q2

REPORT INFORMATION
  Report Type: Spontaneous
  Country: US (occurrence: None)
  Receive Date: 20160502
  Receipt Date: 20160502
  Transmission Date: 20160815
  Serious: Yes (Other)
  Sender: FDA-Public Use
  Company Number: None

PATIENT
  Age: 71 Year
  Sex: Female
  Weight: 81.65 kg

DRUGS (9)
  1. HYDROCHLOROTHIAZIDE. [Concomitant]
     Active Substance: HYDROCHLOROTHIAZIDE
  2. MEGA RED [Concomitant]
  3. SILVER CENTRUM [Concomitant]
  4. GARLIC TABS [Concomitant]
  5. STOOL SOFTENER [Concomitant]
     Active Substance: DOCUSATE CALCIUM
  6. ASPIRIN. [Concomitant]
     Active Substance: ASPIRIN
  7. NEXIUM [Concomitant]
     Active Substance: ESOMEPRAZOLE MAGNESIUM
  8. PANTOPRAZOLE [Suspect]
     Active Substance: PANTOPRAZOLE SODIUM
     Indication: GASTROOESOPHAGEAL REFLUX DISEASE
     Route: 048
     Dates: start: 20160306, end: 20160403
  9. CALTRATE WITH VITD [Concomitant]

REACTIONS (7)
  - Epistaxis [None]
  - Productive cough [None]
  - Rectal haemorrhage [None]
  - Throat tightness [None]
  - Hypersensitivity [None]
  - Unevaluable event [None]
  - Pyrexia [None]

NARRATIVE: CASE EVENT DATE: 20160404
